FAERS Safety Report 10451526 (Version 1)
Quarter: 2014Q3

REPORT INFORMATION
  Report Type: Spontaneous
  Country: US (occurrence: US)
  Receive Date: 20140913
  Receipt Date: 20140913
  Transmission Date: 20150326
  Serious: No
  Sender: FDA-Public Use
  Company Number: US-ASTRAZENECA-2014SE67791

PATIENT
  Age: 54 Year
  Sex: Female

DRUGS (2)
  1. UNSPECIFIED MEDICATIONS [Concomitant]
     Active Substance: UNSPECIFIED INGREDIENT
  2. NEXIUM 24HR [Suspect]
     Active Substance: ESOMEPRAZOLE MAGNESIUM
     Indication: GASTROOESOPHAGEAL REFLUX DISEASE
     Dosage: 44.6 MG, 1X/DAY (BY TAKING TWO ORAL CAPSULES OF 22.3MG TOGETHER)
     Route: 048
     Dates: start: 20140827, end: 20140903

REACTIONS (3)
  - Malaise [Unknown]
  - Intentional product misuse [Unknown]
  - Drug ineffective for unapproved indication [Unknown]

NARRATIVE: CASE EVENT DATE: 2014
